FAERS Safety Report 4965756-8 (Version None)
Quarter: 2006Q2

REPORT INFORMATION
  Report Type: 
  Country: None (occurrence: None)
  Receive Date: 20060407
  Receipt Date: 20060329
  Transmission Date: 20061013
  Serious: Yes (Hospitalization, Other)
  Sender: FDA-Public Use
  Company Number: GB-JNJFOC-20060307244

PATIENT
  Sex: Male

DRUGS (6)
  1. REMICADE [Suspect]
     Indication: RHEUMATOID ARTHRITIS
     Route: 042
  2. METHOTREXATE [Concomitant]
     Route: 065
  3. PREDNISOLONE [Concomitant]
     Route: 065
  4. FLUOXETINE HCL [Concomitant]
     Route: 065
  5. FOLIC ACID [Concomitant]
     Route: 065
  6. RAMIPRIL [Concomitant]
     Route: 065

REACTIONS (1)
  - LUNG SQUAMOUS CELL CARCINOMA STAGE UNSPECIFIED [None]
